FAERS Safety Report 19932145 (Version 1)
Quarter: 2021Q4

REPORT INFORMATION
  Report Type: Spontaneous
  Country: GB (occurrence: GB)
  Receive Date: 20211008
  Receipt Date: 20211008
  Transmission Date: 20220303
  Serious: Yes (Hospitalization, Other)
  Sender: FDA-Public Use
  Company Number: GB-NOVOPROD-853425

PATIENT
  Sex: Male

DRUGS (2)
  1. NOVORAPID [Suspect]
     Active Substance: INSULIN ASPART
     Indication: Type 2 diabetes mellitus
     Dosage: 30 (ARBITRARY UNITS) TOTAL THREE TIMES DAILY
     Route: 065
     Dates: start: 1996
  2. INSULIN DETEMIR [Suspect]
     Active Substance: INSULIN DETEMIR
     Indication: Type 2 diabetes mellitus
     Dosage: 70 (ARBITRARY UNITS) TOTAL TWICE DAILY
     Route: 065
     Dates: start: 1996

REACTIONS (1)
  - Retinal tear [Recovering/Resolving]

NARRATIVE: CASE EVENT DATE: 20110101
